FAERS Safety Report 20499806 (Version 1)
Quarter: 2022Q1

REPORT INFORMATION
  Report Type: Spontaneous
  Country: US (occurrence: US)
  Receive Date: 20220222
  Receipt Date: 20220222
  Transmission Date: 20220423
  Serious: No
  Sender: FDA-Public Use
  Company Number: US-UCBSA-2021010465

PATIENT
  Sex: Male

DRUGS (22)
  1. LEVETIRACETAM [Suspect]
     Active Substance: LEVETIRACETAM
     Indication: Product used for unknown indication
     Dosage: 1000 MILLIGRAM, 3X/DAY (TID)
     Route: 048
  2. NEUPRO [Concomitant]
     Active Substance: ROTIGOTINE
     Indication: Parkinson^s disease
     Dosage: 2 MILLIGRAM, ONCE DAILY (QD)
     Route: 062
  3. VIMPAT [Concomitant]
     Active Substance: LACOSAMIDE
     Indication: Product used for unknown indication
     Dosage: 150 MILLIGRAM, 2X/DAY (BID)
     Route: 048
  4. ACETAMINOPHEN [Concomitant]
     Active Substance: ACETAMINOPHEN
     Indication: Pain
     Dosage: TAKE 1 TABLET SY MOUTH EVERY 6 HOURS AS NEEDED FOR PAIN
     Route: 048
  5. BACLOFEN [Concomitant]
     Active Substance: BACLOFEN
     Indication: Product used for unknown indication
  6. CARBIDOPA\LEVODOPA [Concomitant]
     Active Substance: CARBIDOPA\LEVODOPA
     Indication: Product used for unknown indication
     Dosage: TAKE 2 TABLETS BY MOUTH 3 TIMES A DAY
  7. DONEPEZIL [Concomitant]
     Active Substance: DONEPEZIL
     Indication: Product used for unknown indication
     Dosage: TAKE 1 TABLET SY MOUTH EVERYDAY AT BEDTIME
  8. DULOXETINE [Concomitant]
     Active Substance: DULOXETINE
     Indication: Product used for unknown indication
     Dosage: TAKE ONE (1) CAPSULE(S) BY MOUTH DAILY
  9. FINASTERIDE [Concomitant]
     Active Substance: FINASTERIDE
     Indication: Product used for unknown indication
     Dosage: TAKE 1 TABLET BY MOUTH EVERY DAY
  10. FLUTICASONE PROPIONATE [Concomitant]
     Active Substance: FLUTICASONE PROPIONATE
     Indication: Product used for unknown indication
  11. HYDROCODONE BITARTRATE AND ACETAMINOPHEN [Concomitant]
     Active Substance: ACETAMINOPHEN\HYDROCODONE BITARTRATE
     Indication: Product used for unknown indication
  12. LIDOCAINE HYDROCHLORIDE;PRILOCAINE [Concomitant]
     Indication: Product used for unknown indication
  13. HYDROCHLOROTHIAZIDE\LISINOPRIL [Concomitant]
     Active Substance: HYDROCHLOROTHIAZIDE\LISINOPRIL
     Indication: Product used for unknown indication
     Dosage: TAKE 1 TABLET BY MOUTH EVERY DAY
  14. MEMANTINE [Concomitant]
     Active Substance: MEMANTINE
     Indication: Product used for unknown indication
     Dosage: TAKE 1 TABLET BY MOUTH TWICE A DAY
  15. METHYLPHENIDATE [Concomitant]
     Active Substance: METHYLPHENIDATE
     Indication: Product used for unknown indication
     Dosage: TAKE 1 TABLET BY MOUTH THREE TIMES A DAY AS NEEDED A5 DIRECTED
  16. MODAFINIL [Concomitant]
     Active Substance: MODAFINIL
     Indication: Product used for unknown indication
     Dosage: TAKE ONE (1) TABLET(5) BY MOUTH ONCE A DAY IN THE MORNING
  17. MOXIFLOXACIN [Concomitant]
     Active Substance: MOXIFLOXACIN
     Indication: Product used for unknown indication
  18. NEOMYCIN [Concomitant]
     Active Substance: NEOMYCIN
     Indication: Product used for unknown indication
  19. NITROFURANTOIN MACROCRYSTALS [Concomitant]
     Active Substance: NITROFURANTOIN
     Indication: Product used for unknown indication
  20. OXYBUTYNIN CHLORIDE [Concomitant]
     Active Substance: OXYBUTYNIN CHLORIDE
     Indication: Product used for unknown indication
     Dosage: TAKE 1 TABLET BY MOUTH TWICE A DAY
  21. PRAVASTATIN [Concomitant]
     Active Substance: PRAVASTATIN
     Indication: Product used for unknown indication
     Dosage: TAKE 1 TABLET BY MOUTH EVERY DAY
  22. PRIMIDONE [Concomitant]
     Active Substance: PRIMIDONE
     Indication: Product used for unknown indication
     Dosage: TAKE 2 TABLETS BY MOUTH 3 TIMES A DAY

REACTIONS (1)
  - No adverse event [Unknown]
